FAERS Safety Report 10622359 (Version 1)
Quarter: 2014Q4

REPORT INFORMATION
  Report Type: Spontaneous
  Country: US (occurrence: None)
  Receive Date: 20141201
  Receipt Date: 20141201
  Transmission Date: 20150529
  Serious: Yes (Hospitalization)
  Sender: FDA-Public Use
  Company Number: None

PATIENT
  Age: 11 Year
  Sex: Female
  Weight: 27 kg

DRUGS (6)
  1. BENADRYL [Concomitant]
     Active Substance: DIPHENHYDRAMINE HYDROCHLORIDE
  2. SORAFENIB [Suspect]
     Active Substance: SORAFENIB
     Indication: DESMOID TUMOUR
     Route: 048
     Dates: start: 20141113, end: 20141122
  3. ATIVAN [Concomitant]
     Active Substance: LORAZEPAM
  4. BACTRIM [Concomitant]
     Active Substance: SULFAMETHOXAZOLE\TRIMETHOPRIM
  5. EMLA [Concomitant]
     Active Substance: LIDOCAINE\PRILOCAINE
  6. MULTIVITAMIN [Concomitant]
     Active Substance: VITAMINS

REACTIONS (5)
  - Infection [None]
  - Rash erythematous [None]
  - Stevens-Johnson syndrome [None]
  - Pyrexia [None]
  - Drug hypersensitivity [None]

NARRATIVE: CASE EVENT DATE: 20141122
